FAERS Safety Report 7787454-8 (Version None)
Quarter: 2011Q3

REPORT INFORMATION
  Report Type: 
  Country: None (occurrence: None)
  Receive Date: 20110929
  Receipt Date: 20110924
  Transmission Date: 20111222
  Serious: Yes (Hospitalization)
  Sender: FDA-Public Use
  Company Number: US-ABBOTT-11P-163-0853245-00

PATIENT
  Sex: Male
  Weight: 95.34 kg

DRUGS (35)
  1. CLOTRIMAZOLE HCTZ [Concomitant]
     Indication: HYPERTENSION
     Dosage: 75/50
  2. MULTI-VITAMINS [Concomitant]
     Indication: PRODUCT USED FOR UNKNOWN INDICATION
     Dosage: DAILY
  3. FOLIC ACID [Concomitant]
     Indication: PRODUCT USED FOR UNKNOWN INDICATION
  4. IRON [Concomitant]
     Indication: PRODUCT USED FOR UNKNOWN INDICATION
  5. HUMIRA [Suspect]
     Indication: CROHN'S DISEASE
     Route: 058
     Dates: start: 20110606, end: 20110606
  6. HUMIRA [Suspect]
     Route: 058
  7. ELAVIL [Concomitant]
     Indication: INSOMNIA
     Dosage: AT BEDTIME
  8. HTZ [Concomitant]
     Indication: HYPERTENSION
  9. OXYCODONE [Concomitant]
     Indication: ABDOMINAL PAIN
  10. DILTIAZEM CD [Concomitant]
     Indication: HYPERTENSION
  11. LEXAPRO [Concomitant]
     Indication: DEPRESSION
  12. CALCIUM +VIT D [Concomitant]
     Indication: PRODUCT USED FOR UNKNOWN INDICATION
  13. FISH OIL [Concomitant]
     Indication: PRODUCT USED FOR UNKNOWN INDICATION
  14. NITROGLYCERIN [Concomitant]
     Indication: CHEST PAIN
     Route: 060
  15. DEXILANT [Concomitant]
     Indication: GASTROOESOPHAGEAL REFLUX DISEASE
  16. OXYCODONE [Concomitant]
     Indication: BACK PAIN
     Dosage: 325/5 MG
  17. HUMIRA [Suspect]
     Route: 058
     Dates: start: 20110616, end: 20110815
  18. VANCOMYCIN [Suspect]
     Indication: CLOSTRIDIAL INFECTION
     Dates: start: 20110819
  19. HYTRIN [Concomitant]
     Indication: HYPERTENSION
     Dosage: AT BEDTIME
  20. LIPITOR [Concomitant]
     Indication: BLOOD TRIGLYCERIDES INCREASED
  21. ATARAX [Concomitant]
     Indication: PRURITUS
  22. HUMALOG [Concomitant]
     Indication: DIABETES MELLITUS
     Dosage: SLIDING SCALE AS NEEDED
  23. FUROSEMIDE [Concomitant]
     Indication: SWELLING
  24. VIT C [Concomitant]
     Indication: PRODUCT USED FOR UNKNOWN INDICATION
  25. FENOFIBRATE [Concomitant]
     Indication: BLOOD TRIGLYCERIDES INCREASED
     Dates: start: 20110820
  26. PREDNISONE [Concomitant]
     Indication: CROHN'S DISEASE
  27. BENICAR [Concomitant]
     Indication: HYPERTENSION
  28. TEKTURNA [Concomitant]
     Indication: HYPERTENSION
  29. ASPIRIN [Concomitant]
     Indication: PRODUCT USED FOR UNKNOWN INDICATION
     Dosage: FULL DOSE
  30. UNKNOWN MEDICATION [Concomitant]
     Indication: HYPERTENSION
  31. CARVEDILOL [Concomitant]
     Indication: HYPERTENSION
  32. LANTUS [Concomitant]
     Indication: DIABETES MELLITUS
     Dosage: AT BEDTIME
  33. CO Q-10 [Concomitant]
     Indication: PRODUCT USED FOR UNKNOWN INDICATION
  34. VANCOMYCIN [Suspect]
     Dates: end: 20110826
  35. AUGMENTIN '125' [Concomitant]
     Indication: PRODUCT USED FOR UNKNOWN INDICATION
     Dates: start: 20110819, end: 20110826

REACTIONS (8)
  - ERYTHEMA [None]
  - CELLULITIS [None]
  - DIARRHOEA [None]
  - CLOSTRIDIUM DIFFICILE COLITIS [None]
  - PAIN IN EXTREMITY [None]
  - PRURITUS GENERALISED [None]
  - CROHN'S DISEASE [None]
  - DRUG INEFFECTIVE [None]
